FAERS Safety Report 7283396-5 (Version None)
Quarter: 2011Q1

REPORT INFORMATION
  Report Type: 
  Country: None (occurrence: None)
  Receive Date: 20110209
  Receipt Date: 20100804
  Transmission Date: 20110831
  Serious: No
  Sender: FDA-Public Use
  Company Number: A0875592A

PATIENT
  Sex: Female

DRUGS (1)
  1. PAXIL [Suspect]
     Dosage: 100MG UNKNOWN
     Route: 061

REACTIONS (3)
  - PARAESTHESIA [None]
  - ALLERGY TO CHEMICALS [None]
  - BURNING SENSATION [None]
